FAERS Safety Report 6708151-3 (Version None)
Quarter: 2010Q2

REPORT INFORMATION
  Report Type: 
  Country: None (occurrence: None)
  Receive Date: 20100503
  Receipt Date: 20091102
  Transmission Date: 20101027
  Serious: No
  Sender: FDA-Public Use
  Company Number: US-ASTRAZENECA-2009SE24014

PATIENT
  Age: 63 Year
  Sex: Female
  Weight: 54.4 kg

DRUGS (5)
  1. NEXIUM [Suspect]
     Indication: GASTROOESOPHAGEAL REFLUX DISEASE
     Dosage: 40-80 MG
     Route: 048
     Dates: start: 20091001
  2. NEXIUM [Suspect]
     Indication: DYSPHAGIA
     Dosage: 40-80 MG
     Route: 048
     Dates: start: 20091001
  3. LAMICTAL [Concomitant]
     Indication: EPILEPSY
  4. SYNTHROID [Concomitant]
     Indication: THYROID DISORDER
  5. EVISTA [Concomitant]

REACTIONS (2)
  - MYALGIA [None]
  - TENDON INJURY [None]
